FAERS Safety Report 17410776 (Version 2)
Quarter: 2020Q2

REPORT INFORMATION
  Report Type: Spontaneous
  Country: PL (occurrence: PL)
  Receive Date: 20200212
  Receipt Date: 20200424
  Transmission Date: 20200713
  Serious: Yes (Death, Other)
  Sender: FDA-Public Use
  Company Number: PL-TAKEDA-2020TUS009479

PATIENT
  Sex: Male

DRUGS (15)
  1. HYDROCHLOROTHIAZIDE. [Concomitant]
     Active Substance: HYDROCHLOROTHIAZIDE
     Indication: OEDEMA PERIPHERAL
     Dosage: 12.5 MILLIGRAM
  2. MATRIFEN [Concomitant]
     Active Substance: FENTANYL
     Dosage: UNK
  3. ESTAZOLAM. [Concomitant]
     Active Substance: ESTAZOLAM
     Dosage: UNK
  4. DEXAMETHASONE. [Suspect]
     Active Substance: DEXAMETHASONE
     Indication: PLASMA CELL MYELOMA
     Dosage: UNK
     Route: 065
  5. HEVIRAN                            /00587301/ [Concomitant]
     Dosage: 800 MILLIGRAM
  6. CYCLONAMINE [Concomitant]
     Active Substance: ETHAMSYLATE
     Dosage: UNK
  7. DARZALEX [Suspect]
     Active Substance: DARATUMUMAB
     Indication: PLASMA CELL MYELOMA
     Dosage: 800 MILLIGRAM
     Route: 042
     Dates: start: 20191015, end: 20191224
  8. ESOMEPRAZOLE MAGNESIUM. [Concomitant]
     Active Substance: ESOMEPRAZOLE MAGNESIUM
     Dosage: 40 MILLIGRAM
  9. MEGACE [Concomitant]
     Active Substance: MEGESTROL ACETATE
     Dosage: UNK
  10. ZOLEDRONIC ACID [Concomitant]
     Active Substance: ZOLEDRONIC ACID
     Dosage: 4 MILLIGRAM, 1/WEEK
     Route: 042
  11. CLEXANE [Concomitant]
     Active Substance: ENOXAPARIN SODIUM
     Dosage: UNK
  12. VELCADE [Suspect]
     Active Substance: BORTEZOMIB
     Indication: PLASMA CELL MYELOMA
     Dosage: UNK
     Route: 065
  13. ALKERAN [Concomitant]
     Active Substance: MELPHALAN
     Dosage: 2 MILLIGRAM, TID
  14. MILURIT [Concomitant]
     Active Substance: ALLOPURINOL
     Dosage: 100 MILLIGRAM
  15. DOLTARD [Concomitant]
     Dosage: UNK

REACTIONS (4)
  - Anal haemorrhage [Unknown]
  - Monoparesis [Fatal]
  - Plasma cell myeloma [Fatal]
  - Spinal cord compression [Fatal]

NARRATIVE: CASE EVENT DATE: 201912
